FAERS Safety Report 19589603 (Version 1)
Quarter: 2021Q3

REPORT INFORMATION
  Report Type: Spontaneous
  Country: US (occurrence: US)
  Receive Date: 20210721
  Receipt Date: 20210721
  Transmission Date: 20211014
  Serious: Yes (Other)
  Sender: FDA-Public Use
  Company Number: US-BAYER-2021-179151

PATIENT

DRUGS (1)
  1. MIRALAX [Suspect]
     Active Substance: POLYETHYLENE GLYCOL 3350
     Dosage: TWICE A DAY
     Route: 048

REACTIONS (4)
  - Intestinal prolapse [None]
  - Therapeutic product effect decreased [Unknown]
  - Abnormal faeces [None]
  - Constipation [Unknown]
